FAERS Safety Report 5760914-7 (Version None)
Quarter: 2008Q2

REPORT INFORMATION
  Report Type: 
  Country: None (occurrence: None)
  Receive Date: 20080606
  Receipt Date: 20080604
  Transmission Date: 20081010
  Serious: Yes (Hospitalization)
  Sender: FDA-Public Use
  Company Number: US-BRISTOL-MYERS SQUIBB COMPANY-14216113

PATIENT
  Age: 38 Year
  Sex: Female

DRUGS (2)
  1. ABILIFY [Suspect]
     Indication: SCHIZOAFFECTIVE DISORDER
     Dosage: INITIAL STARTED WITH 10 MG DAILY FOR 3 MONTHS,LATER INCREASED TO 15 MG DAILY.
  2. SEROQUEL [Concomitant]

REACTIONS (1)
  - ENCEPHALOPATHY [None]
